FAERS Safety Report 7688138-7 (Version None)
Quarter: 2011Q3

REPORT INFORMATION
  Report Type: 
  Country: None (occurrence: None)
  Receive Date: 20110817
  Receipt Date: 20110812
  Transmission Date: 20111222
  Serious: Yes (Death)
  Sender: FDA-Public Use
  Company Number: BR-SANOFI-AVENTIS-2011SA051952

PATIENT
  Age: 63 Year
  Sex: Male
  Weight: 90 kg

DRUGS (6)
  1. OMEPRAZOLE [Concomitant]
     Indication: PROPHYLAXIS
     Route: 048
     Dates: end: 20110803
  2. AMLODIPINE BESYLATE [Concomitant]
     Indication: HYPERTENSION
     Route: 048
     Dates: end: 20110803
  3. METFORMIN HCL [Concomitant]
     Route: 048
     Dates: end: 20110803
  4. ENALAPRIL MALEATE [Concomitant]
     Indication: HYPERTENSION
     Route: 048
     Dates: end: 20110802
  5. ENOXAPARIN SODIUM [Suspect]
     Indication: ORTHOPEDIC PROCEDURE
     Route: 058
     Dates: start: 20110802, end: 20110802
  6. DIAMICRON [Concomitant]
     Route: 048
     Dates: end: 20110803

REACTIONS (3)
  - FATIGUE [None]
  - ACUTE MYOCARDIAL INFARCTION [None]
  - RENAL FAILURE [None]
